FAERS Safety Report 8337161-8 (Version None)
Quarter: 2012Q2

REPORT INFORMATION
  Report Type: 
  Country: None (occurrence: None)
  Receive Date: 20120504
  Receipt Date: 20120426
  Transmission Date: 20120825
  Serious: Yes (Other)
  Sender: FDA-Public Use
  Company Number: PHHY2012AR036235

PATIENT
  Sex: Female

DRUGS (2)
  1. GALVUS [Concomitant]
     Dosage: 50 MG,
  2. RASILEZ [Suspect]
     Indication: HYPERTENSION
     Dosage: 300 MG, DAILY
     Dates: start: 20111101

REACTIONS (1)
  - DIABETES MELLITUS [None]
